FAERS Safety Report 8448210-0 (Version None)
Quarter: 2012Q2

REPORT INFORMATION
  Report Type: 
  Country: None (occurrence: None)
  Receive Date: 20120619
  Receipt Date: 20120607
  Transmission Date: 20120825
  Serious: Yes (Hospitalization)
  Sender: FDA-Public Use
  Company Number: JP-ELI_LILLY_AND_COMPANY-JP201205002380

PATIENT
  Age: 55 Year
  Sex: Female

DRUGS (12)
  1. ADSORBIN [Concomitant]
     Dosage: UNK
     Route: 065
  2. ENSURE                             /06360301/ [Concomitant]
     Dosage: UNK
     Route: 065
  3. PENTASA [Concomitant]
     Dosage: UNK
     Route: 065
  4. BERIZYM [Concomitant]
     Dosage: UNK
     Route: 065
  5. LAC-B [Concomitant]
     Dosage: UNK
     Route: 065
  6. FORTEO [Suspect]
     Dosage: UNK
     Route: 058
     Dates: start: 20111214
  7. NEXIUM [Concomitant]
     Route: 065
  8. LEVOTHYROXINE SODIUM [Concomitant]
     Dosage: UNK
     Route: 065
  9. WARFARIN SODIUM [Concomitant]
     Dosage: UNK
     Route: 065
  10. LOPEMIN [Concomitant]
     Dosage: UNK
     Route: 065
  11. TANNALBIN [Concomitant]
     Dosage: UNK
     Route: 065
  12. POLYFUL [Concomitant]
     Dosage: UNK
     Route: 065

REACTIONS (4)
  - HYPOCALCAEMIA [None]
  - HYPOMAGNESAEMIA [None]
  - BLOOD PARATHYROID HORMONE INCREASED [None]
  - TETANY [None]
